FAERS Safety Report 10047206 (Version 1)
Quarter: 2014Q1

REPORT INFORMATION
  Report Type: Spontaneous
  Country: US (occurrence: US)
  Receive Date: 20140331
  Receipt Date: 20140331
  Transmission Date: 20141002
  Serious: No
  Sender: FDA-Public Use
  Company Number: US-MYLANLABS-2013S1019404

PATIENT
  Age: 51 Year
  Sex: Female
  Weight: 77.11 kg

DRUGS (7)
  1. FENTANYL TRANSDERMAL SYSTEM [Suspect]
     Indication: PELVIC PAIN
     Dosage: Q72H
     Route: 062
     Dates: start: 201306
  2. PERCOCET [Concomitant]
     Indication: PAIN
  3. LYRICA [Concomitant]
     Indication: PAIN
  4. PRISTIQ [Concomitant]
     Indication: DEPRESSION
  5. SYNTHROID [Concomitant]
     Indication: HYPOTHYROIDISM
  6. ATENOLOL [Concomitant]
     Indication: CARDIAC DISORDER
  7. NEXIUM [Concomitant]
     Indication: GASTRIC DISORDER

REACTIONS (2)
  - Nervousness [Not Recovered/Not Resolved]
  - Feeling abnormal [Not Recovered/Not Resolved]
